FAERS Safety Report 24422399 (Version 5)
Quarter: 2025Q1

REPORT INFORMATION
  Report Type: Spontaneous
  Country: US (occurrence: US)
  Receive Date: 20241010
  Receipt Date: 20250225
  Transmission Date: 20250409
  Serious: Yes (Other)
  Sender: BAUSCH AND LOMB
  Company Number: US-BAUSCH-BL-2024-014868

PATIENT
  Sex: Male

DRUGS (5)
  1. DIHYDROERGOTAMINE MESYLATE [Suspect]
     Active Substance: DIHYDROERGOTAMINE MESYLATE
     Indication: Migraine
     Route: 045
  2. THORAZINE [Concomitant]
     Active Substance: CHLORPROMAZINE
     Indication: Migraine
     Route: 065
  3. BENADRYL [Concomitant]
     Active Substance: DIPHENHYDRAMINE HYDROCHLORIDE
     Indication: Migraine
     Route: 065
  4. SOLU-MEDROL [Concomitant]
     Active Substance: METHYLPREDNISOLONE SODIUM SUCCINATE
     Indication: Migraine
     Route: 065
  5. VALPROIC ACID [Concomitant]
     Active Substance: VALPROIC ACID
     Indication: Migraine
     Route: 065

REACTIONS (5)
  - Blood pressure increased [Unknown]
  - Chest pain [Unknown]
  - Migraine [Unknown]
  - Product availability issue [Unknown]
  - Inability to afford medication [Unknown]
